FAERS Safety Report 4501904-1 (Version None)
Quarter: 2004Q4

REPORT INFORMATION
  Report Type: 
  Country: None (occurrence: None)
  Receive Date: 20041115
  Receipt Date: 20041115
  Transmission Date: 20050328
  Serious: Yes (Death)
  Sender: FDA-Public Use
  Company Number: None

PATIENT
  Age: 28 Year
  Sex: Male
  Weight: 99.7913 kg

DRUGS (5)
  1. DURAGESIC [Suspect]
     Indication: POSTOPERATIVE ANALGESIA
     Dosage: 75 UG/H CONTINOUS 75 H TRANSDEMA
     Route: 062
     Dates: start: 20040304, end: 20040306
  2. ETHANOL-BEER [Concomitant]
  3. HYDROMORPHONE HCL [Concomitant]
  4. OXYCODONE HCL [Concomitant]
  5. MORPHINE [Concomitant]

REACTIONS (3)
  - DRUG LEVEL ABOVE THERAPEUTIC [None]
  - MEDICATION ERROR [None]
  - POST PROCEDURAL COMPLICATION [None]
